FAERS Safety Report 25461441 (Version 2)
Quarter: 2025Q2

REPORT INFORMATION
  Report Type: Spontaneous
  Country: CN (occurrence: CN)
  Receive Date: 20250620
  Receipt Date: 20250624
  Transmission Date: 20250717
  Serious: Yes (Hospitalization)
  Sender: MERCK SHARP & DOHME LLC
  Company Number: CN-009507513-2297498

PATIENT
  Age: 58 Year
  Sex: Male
  Weight: 95 kg

DRUGS (3)
  1. TEMOZOLOMIDE [Suspect]
     Active Substance: TEMOZOLOMIDE
     Indication: Small cell lung cancer
     Route: 048
     Dates: start: 20241013, end: 20241124
  2. SURUFATINIB [Suspect]
     Active Substance: SURUFATINIB
     Indication: Small cell lung cancer
     Route: 048
     Dates: start: 20240929, end: 20241124
  3. IMFINZI [Concomitant]
     Active Substance: DURVALUMAB
     Indication: Small cell lung cancer
     Dates: start: 20241013

REACTIONS (2)
  - Liver injury [Recovering/Resolving]
  - Blood creatinine decreased [Unknown]

NARRATIVE: CASE EVENT DATE: 20241123
